FAERS Safety Report 5711919-3 (Version None)
Quarter: 2008Q2

REPORT INFORMATION
  Report Type: 
  Country: None (occurrence: None)
  Receive Date: 20080421
  Receipt Date: 20080410
  Transmission Date: 20081010
  Serious: Yes (Other)
  Sender: FDA-Public Use
  Company Number: BR-PFIZER INC-2008032678

PATIENT
  Sex: Male

DRUGS (3)
  1. GEODON [Suspect]
     Indication: SCHIZOPHRENIA
     Dosage: FREQ:DAILY
  2. CARBAMAZEPINE [Concomitant]
  3. ANTIEPILEPTICS [Concomitant]

REACTIONS (1)
  - MUSCLE SPASMS [None]
